FAERS Safety Report 5698186-4 (Version None)
Quarter: 2008Q2

REPORT INFORMATION
  Report Type: 
  Country: None (occurrence: None)
  Receive Date: 20080408
  Receipt Date: 20080327
  Transmission Date: 20081010
  Serious: Yes (Other)
  Sender: FDA-Public Use
  Company Number: GB-PFIZER INC-2008024866

PATIENT
  Age: 39 Year
  Sex: Male

DRUGS (1)
  1. CELSENTRI [Suspect]

REACTIONS (2)
  - DRUG RESISTANCE [None]
  - TREATMENT FAILURE [None]
